FAERS Safety Report 13741492 (Version 1)
Quarter: 2017Q3

REPORT INFORMATION
  Report Type: Spontaneous
  Country: US (occurrence: US)
  Receive Date: 20170711
  Receipt Date: 20170711
  Transmission Date: 20171127
  Serious: Yes (Disabling)
  Sender: FDA-Public Use
  Company Number: None

PATIENT
  Age: 58 Year
  Sex: Female
  Weight: 71.1 kg

DRUGS (5)
  1. VITAMIN C [Concomitant]
     Active Substance: ASCORBIC ACID
  2. GARLIC CAPS [Concomitant]
  3. AMOXICILLIN 500 MG CAPSULE [Suspect]
     Active Substance: AMOXICILLIN SODIUM
     Indication: SINUSITIS
     Dosage: ?          OTHER STRENGTH:MG;QUANTITY:60 TABLET(S);?
     Route: 048
     Dates: start: 20161102, end: 20161126
  4. WALGREENS COLD TABLETS [Concomitant]
  5. MUCINEX [Concomitant]
     Active Substance: GUAIFENESIN

REACTIONS (4)
  - Hyposmia [None]
  - Sinus congestion [None]
  - Sinus disorder [None]
  - Inflammation [None]

NARRATIVE: CASE EVENT DATE: 20170403
